FAERS Safety Report 26110812 (Version 1)
Quarter: 2025Q4

REPORT INFORMATION
  Report Type: Spontaneous
  Country: US (occurrence: None)
  Receive Date: 20251202
  Receipt Date: 20251202
  Transmission Date: 20260118
  Serious: No
  Sender: CHIESI
  Company Number: US-CHIESI-2025CHF01890

PATIENT
  Age: 31 Year
  Sex: Male

DRUGS (1)
  1. REVCOVI [Suspect]
     Active Substance: ELAPEGADEMASE-LVLR
     Indication: Combined immunodeficiency
     Dosage: 6.4 MILLILITER, QW
     Route: 065
     Dates: start: 20210923

REACTIONS (2)
  - Psoriasis [Not Recovered/Not Resolved]
  - Condition aggravated [Recovered/Resolved]

NARRATIVE: CASE EVENT DATE: 20250203
